FAERS Safety Report 5218274-6 (Version None)
Quarter: 2007Q1

REPORT INFORMATION
  Report Type: 
  Country: None (occurrence: None)
  Receive Date: 20061130
  Receipt Date: 20060530
  Transmission Date: 20070707
  Serious: Yes (Other)
  Sender: FDA-Public Use
  Company Number: US200603000707

PATIENT
  Age: 48 Year
  Sex: Female
  Weight: 136.1 kg

DRUGS (10)
  1. OLANZAPINE [Suspect]
     Dosage: SEE IMAGE
     Route: 048
     Dates: start: 19961001, end: 19990201
  2. OLANZAPINE [Suspect]
     Dosage: SEE IMAGE
     Route: 048
     Dates: start: 19990301, end: 20021201
  3. OLANZAPINE [Suspect]
     Dosage: SEE IMAGE
     Route: 048
     Dates: start: 20030101, end: 20030226
  4. ABILIFY [Concomitant]
  5. TRILAFON [Concomitant]
  6. WELLBUTRIN [Concomitant]
  7. PAXIL [Concomitant]
  8. ZOLOFT [Concomitant]
  9. EFFEXOR [Concomitant]
  10. TRAZODONE HCL [Concomitant]

REACTIONS (6)
  - CARDIAC FAILURE CONGESTIVE [None]
  - DIABETES MELLITUS [None]
  - HYPERLIPIDAEMIA [None]
  - HYPERTENSION [None]
  - OBESITY [None]
  - WEIGHT INCREASED [None]
